FAERS Safety Report 20229341 (Version 1)
Quarter: 2021Q4

REPORT INFORMATION
  Report Type: Spontaneous
  Country: CZ (occurrence: CZ)
  Receive Date: 20211225
  Receipt Date: 20211225
  Transmission Date: 20220304
  Serious: Yes (Hospitalization, Other)
  Sender: FDA-Public Use
  Company Number: None

PATIENT
  Age: 41 Year
  Sex: Male

DRUGS (1)
  1. ARIPIPRAZOLE [Suspect]
     Active Substance: ARIPIPRAZOLE
     Indication: Dependence
     Dosage: 15 MILLIGRAM DAILY; 1-0-0
     Route: 048
     Dates: start: 20100901, end: 20200701

REACTIONS (4)
  - Morning sickness [Recovered/Resolved]
  - Dependence [Recovered/Resolved]
  - Nicotine dependence [Recovered/Resolved]
  - Behaviour disorder [Recovered/Resolved]

NARRATIVE: CASE EVENT DATE: 20110101
